FAERS Safety Report 23777582 (Version 2)
Quarter: 2024Q2

REPORT INFORMATION
  Report Type: Spontaneous
  Country: FR (occurrence: None)
  Receive Date: 20240424
  Receipt Date: 20240506
  Transmission Date: 20240716
  Serious: Yes (Other)
  Sender: FDA-Public Use
  Company Number: FR-ROCHE-3546387

PATIENT
  Age: 91 Year
  Sex: Female

DRUGS (1)
  1. VABYSMO [Suspect]
     Active Substance: FARICIMAB\FARICIMAB-SVOA
     Indication: Neovascular age-related macular degeneration
     Dosage: ON 21/DEC/2023 2ND INJECTION (BOTH EYES). ON 18/JAN/2024 3RD INJECTION (BOTH EYES). ON 15/FEB/2024 4
     Route: 050
     Dates: start: 20231123

REACTIONS (6)
  - Uveitis [Unknown]
  - Vitritis [Unknown]
  - Retinal vasculitis [Unknown]
  - Visual acuity reduced [Recovering/Resolving]
  - Eye inflammation [Recovering/Resolving]
  - Vitritis [Recovering/Resolving]

NARRATIVE: CASE EVENT DATE: 20240223
